FAERS Safety Report 4577890-5 (Version None)
Quarter: 2005Q1

REPORT INFORMATION
  Report Type: 
  Country: None (occurrence: None)
  Receive Date: 20050209
  Receipt Date: 20050120
  Transmission Date: 20050727
  Serious: Yes (Hospitalization)
  Sender: FDA-Public Use
  Company Number: FR_050105650

PATIENT
  Age: 49 Year
  Sex: Female
  Weight: 95 kg

DRUGS (4)
  1. ALIMTA [Suspect]
     Indication: NON-SMALL CELL LUNG CANCER
     Dosage: 1000 MG OTHER
     Route: 050
     Dates: start: 20041207, end: 20041207
  2. CHLORPROMAZINE HCL [Concomitant]
  3. KETOPROFEN [Concomitant]
  4. FOLIC ACID [Concomitant]

REACTIONS (7)
  - ALANINE AMINOTRANSFERASE INCREASED [None]
  - ASPARTATE AMINOTRANSFERASE INCREASED [None]
  - BLOOD ALKALINE PHOSPHATASE INCREASED [None]
  - CHOLELITHIASIS [None]
  - EPIDERMOLYSIS BULLOSA [None]
  - GAMMA-GLUTAMYLTRANSFERASE INCREASED [None]
  - TOXIC SKIN ERUPTION [None]
